FAERS Safety Report 9469783 (Version 2)
Quarter: 2013Q3

REPORT INFORMATION
  Report Type: Spontaneous
  Country: US (occurrence: US)
  Receive Date: 20130822
  Receipt Date: 20130828
  Transmission Date: 20140515
  Serious: Yes (Other)
  Sender: FDA-Public Use
  Company Number: US-PERRIGO-13US008521

PATIENT
  Age: 63 Year
  Sex: Male
  Weight: 79.82 kg

DRUGS (2)
  1. DAYTIME PE LIQGL 994 [Suspect]
     Indication: NASOPHARYNGITIS
     Dosage: 3 TOTAL LIQUID GEL CAPSULES
     Route: 048
     Dates: start: 20130806, end: 20130807
  2. GABAPENTIN [Concomitant]
     Indication: NERVE INJURY
     Dosage: UNK
     Route: 065
     Dates: start: 201305

REACTIONS (2)
  - Hallucination, visual [Recovered/Resolved]
  - Nightmare [Recovered/Resolved]
